FAERS Safety Report 7224633-2 (Version None)
Quarter: 2011Q1

REPORT INFORMATION
  Report Type: 
  Country: None (occurrence: None)
  Receive Date: 20110103
  Receipt Date: 20101220
  Transmission Date: 20110831
  Serious: Yes (Hospitalization, Other)
  Sender: FDA-Public Use
  Company Number: JPI-P-009302

PATIENT
  Age: 54 Year
  Sex: Female
  Weight: 99.7913 kg

DRUGS (15)
  1. CLINDAMYCIN [Concomitant]
  2. FLUTICASONE PROPIONATE [Concomitant]
  3. ALBUTEROL SULFATE [Concomitant]
  4. XYREM [Suspect]
     Indication: SLEEP DISORDER
     Dosage: (4.5 GM (2.25 GM, 2 IN 1 D), ORAL) 9 GM (4.5 GM, 2 IN 1 D), ORAL)
     Route: 048
     Dates: start: 20041004
  5. XYREM [Suspect]
     Indication: SLEEP DISORDER
     Dosage: (4.5 GM (2.25 GM, 2 IN 1 D), ORAL) 9 GM (4.5 GM, 2 IN 1 D), ORAL)
     Route: 048
     Dates: start: 20090423
  6. PROBIOTIC SUPPLEMENT [Concomitant]
  7. LORATADINE [Concomitant]
  8. LANSOPRAZOLE [Concomitant]
  9. MONTELUKAST SODIUM [Concomitant]
  10. TOPIRAMATE [Concomitant]
  11. AZELASTINE HCL [Concomitant]
  12. TRAMADOL HCL [Suspect]
     Indication: POST-TRAUMATIC PAIN
     Dates: start: 20100901
  13. POLYETHYLENE GLYCOL [Concomitant]
  14. DOXYCYCLINE [Concomitant]
  15. ASPIRIN [Concomitant]

REACTIONS (17)
  - ROAD TRAFFIC ACCIDENT [None]
  - TENDON INJURY [None]
  - NIGHTMARE [None]
  - MEMORY IMPAIRMENT [None]
  - BACK PAIN [None]
  - ARTHRALGIA [None]
  - GASTRIC PERFORATION [None]
  - OSTEOARTHRITIS [None]
  - SCAR [None]
  - COLONIC POLYP [None]
  - VITAMIN D DECREASED [None]
  - ABDOMINAL PAIN UPPER [None]
  - DEPRESSION [None]
  - MUSCLE SPASMS [None]
  - INSOMNIA [None]
  - DIVERTICULITIS [None]
  - ARTHRITIS [None]
